FAERS Safety Report 16393956 (Version 4)
Quarter: 2019Q3

REPORT INFORMATION
  Report Type: Spontaneous
  Country: JP (occurrence: JP)
  Receive Date: 20190605
  Receipt Date: 20190711
  Transmission Date: 20191004
  Serious: Yes (Hospitalization, Other)
  Sender: FDA-Public Use
  Company Number: JP-CELGENEUS-JPN-20190309033

PATIENT
  Age: 82 Year
  Sex: Male
  Weight: 56.6 kg

DRUGS (29)
  1. VIDAZA [Suspect]
     Active Substance: AZACITIDINE
     Indication: ACUTE MYELOID LEUKAEMIA
     Dosage: 114 MILLIGRAM
     Route: 041
     Dates: start: 20190208, end: 20190214
  2. VIDAZA [Suspect]
     Active Substance: AZACITIDINE
     Dosage: 55 MILLIGRAM
     Route: 041
     Dates: start: 20190412, end: 20190418
  3. FLUCONAZOLE. [Concomitant]
     Active Substance: FLUCONAZOLE
     Indication: INFECTION PROPHYLAXIS
     Dosage: 100 MILLIGRAM
     Route: 065
     Dates: start: 20190316
  4. DIFICLIR [Concomitant]
     Active Substance: FIDAXOMICIN
     Indication: CD25 ANTIGEN POSITIVE
     Route: 065
     Dates: end: 20190601
  5. HEPARINOID [Concomitant]
     Active Substance: CHONDROITIN SULFATE (BOVINE)
     Indication: ASTEATOSIS
     Route: 065
     Dates: start: 20140418
  6. ALBUMIN [Concomitant]
     Active Substance: ALBUMIN HUMAN
     Indication: PRODUCT USED FOR UNKNOWN INDICATION
     Dosage: 50 MILLILITER
     Route: 065
     Dates: start: 20190617
  7. DIFICLIR [Concomitant]
     Active Substance: FIDAXOMICIN
     Route: 065
     Dates: start: 20190613
  8. MEROPENEM. [Concomitant]
     Active Substance: MEROPENEM
     Indication: PRODUCT USED FOR UNKNOWN INDICATION
     Route: 065
     Dates: start: 20190410, end: 20190412
  9. VIDAZA [Suspect]
     Active Substance: AZACITIDINE
     Dosage: 114 MILLIGRAM
     Route: 041
     Dates: start: 20190308, end: 20190314
  10. GILTERITINIB [Suspect]
     Active Substance: GILTERITINIB
     Dosage: 40 MILLIGRAM
     Route: 065
     Dates: start: 20190412, end: 20190528
  11. LEVOFLOXACIN HEMIHYDRATE [Concomitant]
     Active Substance: LEVOFLOXACIN
     Indication: INFECTION PROPHYLAXIS
     Dosage: 500 MILLIGRAM
     Route: 065
     Dates: start: 20190314, end: 20190317
  12. L-CARBOCISTEINE [Concomitant]
     Active Substance: CARBOCYSTEINE
     Indication: BRONCHIECTASIS
     Dosage: 1500 MILLIGRAM
     Route: 065
     Dates: start: 20181022
  13. DISTIGMINE BROMIDE [Concomitant]
     Active Substance: DISTIGMINE BROMIDE
     Indication: BENIGN PROSTATIC HYPERPLASIA
     Dosage: 5 MILLIGRAM
     Route: 065
     Dates: start: 1997
  14. BETHANECHOL CHLORIDE. [Concomitant]
     Active Substance: BETHANECHOL CHLORIDE
     Indication: BENIGN PROSTATIC HYPERPLASIA
     Dosage: 1 DOSAGE FORMS
     Route: 065
     Dates: start: 1997
  15. LIRANAFTATE [Concomitant]
     Route: 065
     Dates: start: 20140418
  16. SOLDACTONE [Concomitant]
     Active Substance: CANRENOATE POTASSIUM
     Indication: OEDEMA
     Route: 065
     Dates: start: 20190617
  17. VIDAZA [Suspect]
     Active Substance: AZACITIDINE
     Dosage: 55 MILLIGRAM
     Route: 041
     Dates: start: 20190510, end: 20190516
  18. GILTERITINIB [Suspect]
     Active Substance: GILTERITINIB
     Dosage: 80 MILLIGRAM
     Route: 065
     Dates: start: 20190318, end: 20190403
  19. ESOMEPRAZOLE MAGNESIUM HYDRATE [Concomitant]
     Active Substance: ESOMEPRAZOLE MAGNESIUM
     Indication: GASTROOESOPHAGEAL REFLUX DISEASE
     Dosage: 10 MILLIGRAM
     Route: 065
     Dates: start: 201810
  20. LIRANAFTATE [Concomitant]
     Indication: TINEA INFECTION
     Route: 065
     Dates: start: 20140418
  21. RED BLOOD CELLS [Concomitant]
     Active Substance: HUMAN RED BLOOD CELL
     Indication: PRODUCT USED FOR UNKNOWN INDICATION
     Route: 065
     Dates: start: 20190522
  22. EPINASTINE HYDROCHLORIDE. [Concomitant]
     Active Substance: EPINASTINE HYDROCHLORIDE
     Indication: ECZEMA
     Dosage: 20 MILLIGRAM
     Route: 065
     Dates: start: 20190313
  23. SALICYLIC ACID. [Concomitant]
     Active Substance: SALICYLIC ACID
     Indication: ASTEATOSIS
     Route: 065
     Dates: start: 20140418
  24. GARENOXACIN MESILATE HYRDATE [Concomitant]
     Indication: BACTERIAL INFECTION
     Dosage: 200 MILLIGRAM
     Route: 065
     Dates: start: 20190320
  25. CLOSTRIDIUM BUTYRICUM [Concomitant]
     Active Substance: CLOSTRIDIUM BUTYRICUM SPORES STRAIN M-55
     Indication: ENTEROCOLITIS
     Dosage: 1 DF
     Route: 065
     Dates: start: 20190416
  26. GENTAMYCIN SULFATE [Concomitant]
     Active Substance: GENTAMICIN SULFATE
     Indication: PROCTITIS
     Route: 065
     Dates: start: 20190614
  27. VIDAZA [Suspect]
     Active Substance: AZACITIDINE
     Dosage: 55 MILLIGRAM
     Route: 041
     Dates: start: 20190607, end: 20190612
  28. GILTERITINIB [Suspect]
     Active Substance: GILTERITINIB
     Indication: ACUTE MYELOID LEUKAEMIA
     Dosage: 120 MILLIGRAM
     Route: 065
     Dates: start: 20190208, end: 20190303
  29. TRIBENOSIDE/LIDOCAINE [Concomitant]
     Indication: PROCTITIS
     Route: 065
     Dates: start: 20190614

REACTIONS (6)
  - Pyrexia [Recovered/Resolved]
  - Pyrexia [Recovered/Resolved]
  - Pseudomembranous colitis [Recovered/Resolved]
  - Pyrexia [Recovered/Resolved]
  - Sepsis [Recovered/Resolved]
  - Pneumonia [Recovered/Resolved]

NARRATIVE: CASE EVENT DATE: 20190317
